FAERS Safety Report 9825346 (Version 1)
Quarter: 2014Q1

REPORT INFORMATION
  Report Type: Spontaneous
  Country: US (occurrence: US)
  Receive Date: 20140117
  Receipt Date: 20140117
  Transmission Date: 20141002
  Serious: No
  Sender: FDA-Public Use
  Company Number: US-PFIZER INC-2014012224

PATIENT
  Age: 50 Year
  Sex: Female
  Weight: 79.37 kg

DRUGS (2)
  1. ATORVASTATIN CALCIUM [Suspect]
     Indication: BLOOD CHOLESTEROL INCREASED
     Dosage: UNK
     Route: 048
  2. GLUCOPHAGE [Concomitant]
     Dosage: UNK

REACTIONS (5)
  - Malaise [Unknown]
  - Influenza like illness [Unknown]
  - Myalgia [Unknown]
  - Arthralgia [Unknown]
  - Drug intolerance [Unknown]
